FAERS Safety Report 12563242 (Version 1)
Quarter: 2016Q3

REPORT INFORMATION
  Report Type: Spontaneous
  Country: IT (occurrence: IT)
  Receive Date: 20160715
  Receipt Date: 20160715
  Transmission Date: 20161109
  Serious: Yes (Hospitalization)
  Sender: FDA-Public Use
  Company Number: IT-MYLANLABS-2016M1029217

PATIENT

DRUGS (1)
  1. METFORMIN [Suspect]
     Active Substance: METFORMIN HYDROCHLORIDE
     Indication: DIABETES MELLITUS
     Dosage: 1500 MG, QD
     Route: 048

REACTIONS (5)
  - Lactic acidosis [Unknown]
  - Decreased appetite [Unknown]
  - Acute kidney injury [Unknown]
  - Sopor [Unknown]
  - Nausea [Unknown]

NARRATIVE: CASE EVENT DATE: 20160523
